FAERS Safety Report 6255612-X (Version None)
Quarter: 2009Q3

REPORT INFORMATION
  Report Type: 
  Country: None (occurrence: None)
  Receive Date: 20090702
  Receipt Date: 20090622
  Transmission Date: 20100115
  Serious: Yes (Death)
  Sender: FDA-Public Use
  Company Number: EC-BAXTER-2009BH010625

PATIENT
  Age: 8 Year
  Sex: Female
  Weight: 43 kg

DRUGS (1)
  1. LACTATED RINGER'S [Suspect]
     Indication: DEHYDRATION
     Route: 042

REACTIONS (3)
  - CONTUSION [None]
  - DEATH [None]
  - RASH [None]
